FAERS Safety Report 7667155-7 (Version None)
Quarter: 2011Q3

REPORT INFORMATION
  Report Type: 
  Country: None (occurrence: None)
  Receive Date: 20110806
  Receipt Date: 20110309
  Transmission Date: 20111222
  Serious: No
  Sender: FDA-Public Use
  Company Number: US-ABBOTT-11P-163-0710244-00

PATIENT
  Sex: Male
  Weight: 97.61 kg

DRUGS (10)
  1. M.V.I. [Concomitant]
     Indication: PRODUCT USED FOR UNKNOWN INDICATION
  2. NIASPAN [Suspect]
     Indication: HIGH DENSITY LIPOPROTEIN DECREASED
     Dates: start: 20101001
  3. AVODART [Concomitant]
     Indication: PRODUCT USED FOR UNKNOWN INDICATION
  4. CALCIUM ACETATE [Concomitant]
     Indication: PRODUCT USED FOR UNKNOWN INDICATION
  5. GLIMEPIRIDE [Concomitant]
     Indication: DIABETES MELLITUS
  6. DETROL [Concomitant]
     Indication: PRODUCT USED FOR UNKNOWN INDICATION
  7. METFORMIN HCL [Concomitant]
     Indication: DIABETES MELLITUS
  8. LIPITOR [Concomitant]
     Indication: PRODUCT USED FOR UNKNOWN INDICATION
  9. METFORMIN HCL [Concomitant]
  10. ASPIRIN [Concomitant]
     Indication: PRODUCT USED FOR UNKNOWN INDICATION

REACTIONS (4)
  - ONYCHOMYCOSIS [None]
  - FLUSHING [None]
  - ERYTHEMA [None]
  - BLOOD GLUCOSE INCREASED [None]
